FAERS Safety Report 17500084 (Version 4)
Quarter: 2020Q4

REPORT INFORMATION
  Report Type: Report from Study
  Country: FR (occurrence: FR)
  Receive Date: 20200305
  Receipt Date: 20201230
  Transmission Date: 20210113
  Serious: Yes (Hospitalization)
  Sender: FDA-Public Use
  Company Number: FR-ROCHE-2561761

PATIENT
  Age: 78 Year
  Sex: Female

DRUGS (5)
  1. ATEZOLIZUMAB. [Suspect]
     Active Substance: ATEZOLIZUMAB
     Indication: ANAL CANCER
     Route: 042
     Dates: start: 20200203
  2. 5-FLUOROURACIL [Suspect]
     Active Substance: FLUOROURACIL
     Indication: ANAL CANCER
     Route: 065
     Dates: start: 20200203
  3. CISPLATIN. [Suspect]
     Active Substance: CISPLATIN
     Indication: ANAL CANCER
     Route: 065
     Dates: start: 20200203
  4. DOCETAXEL. [Suspect]
     Active Substance: DOCETAXEL
     Indication: ANAL CANCER
     Route: 065
     Dates: start: 20200203
  5. ENALAPRIL [Concomitant]
     Active Substance: ENALAPRIL

REACTIONS (2)
  - Sepsis [Recovered/Resolved]
  - Device related infection [Recovered/Resolved]

NARRATIVE: CASE EVENT DATE: 20200217
